FAERS Safety Report 5273518-X (Version None)
Quarter: 2007Q1

REPORT INFORMATION
  Report Type: 
  Country: None (occurrence: None)
  Receive Date: 20070321
  Receipt Date: 20070321
  Transmission Date: 20070707
  Serious: Yes (Other)
  Sender: FDA-Public Use
  Company Number: None

PATIENT
  Age: 40 Year
  Sex: Female

DRUGS (6)
  1. ALBUTEROL SULFATE AUTOHALER [Suspect]
     Indication: ASTHMA
     Dosage: 2PUFFS IN AM, MORE IF EXERCISING
  2. ZYRTEC [Concomitant]
  3. VALTREX [Concomitant]
  4. VITAMINS [Concomitant]
  5. AMINO ACIDS [Concomitant]
  6. ALFAFA [Concomitant]

REACTIONS (2)
  - CHEST DISCOMFORT [None]
  - CHEST PAIN [None]
